FAERS Safety Report 18088966 (Version 1)
Quarter: 2020Q3

REPORT INFORMATION
  Report Type: Spontaneous
  Country: US (occurrence: US)
  Receive Date: 20200729
  Receipt Date: 20200729
  Transmission Date: 20201103
  Serious: No
  Sender: FDA-Public Use
  Company Number: US-TEVA-2020-US-1807464

PATIENT
  Sex: Male

DRUGS (6)
  1. PREGABALIN GREENSTONE [Suspect]
     Active Substance: PREGABALIN
     Indication: PAIN
  2. PREGABALIN GREENSTONE [Suspect]
     Active Substance: PREGABALIN
     Indication: NEUROPATHY PERIPHERAL
     Route: 065
  3. PREGABALIN. [Suspect]
     Active Substance: PREGABALIN
     Indication: NEUROPATHY PERIPHERAL
     Route: 065
  4. LYRICA [Concomitant]
     Active Substance: PREGABALIN
     Indication: NEUROPATHY PERIPHERAL
  5. PREGABALIN. [Suspect]
     Active Substance: PREGABALIN
     Indication: PAIN
  6. LYRICA [Concomitant]
     Active Substance: PREGABALIN
     Indication: PAIN
     Dosage: 600 MILLIGRAM DAILY;
     Route: 065
     Dates: start: 2008

REACTIONS (8)
  - Agitation [Recovered/Resolved]
  - Product substitution issue [Unknown]
  - Functional gastrointestinal disorder [Recovered/Resolved]
  - Tachyphrenia [Recovered/Resolved]
  - Bladder disorder [Recovered/Resolved]
  - Asthenia [Recovered/Resolved]
  - Loss of personal independence in daily activities [Recovered/Resolved]
  - Pain [Recovered/Resolved]
